FAERS Safety Report 20192530 (Version 1)
Quarter: 2021Q4

REPORT INFORMATION
  Report Type: Report from Study
  Country: US (occurrence: US)
  Receive Date: 20211216
  Receipt Date: 20211216
  Transmission Date: 20220303
  Serious: Yes (Other)
  Sender: FDA-Public Use
  Company Number: US-ABBVIE-21K-163-4200167-00

PATIENT
  Sex: Male

DRUGS (2)
  1. SKYRIZI [Suspect]
     Active Substance: RISANKIZUMAB-RZAA
     Indication: Psoriasis
     Dosage: WEEK 0, WEEK4, AND EVERY 12 WEEKS THEREAFTER
     Route: 058
     Dates: start: 20211111, end: 202112
  2. SKYRIZI [Suspect]
     Active Substance: RISANKIZUMAB-RZAA
     Dosage: WEEK 0, WEEK4, AND EVERY 12 WEEKS THEREAFTER
     Route: 058
     Dates: start: 202112

REACTIONS (6)
  - Neoplasm malignant [Unknown]
  - Headache [Unknown]
  - Sciatica [Unknown]
  - Hyperhidrosis [Unknown]
  - Hot flush [Unknown]
  - Loss of personal independence in daily activities [Unknown]

NARRATIVE: CASE EVENT DATE: 20210101
